FAERS Safety Report 14304477 (Version 1)
Quarter: 2017Q4

REPORT INFORMATION
  Report Type: Report from Study
  Country: JP (occurrence: JP)
  Receive Date: 20171219
  Receipt Date: 20171219
  Transmission Date: 20180321
  Serious: Yes (Other)
  Sender: FDA-Public Use
  Company Number: JP-OTSUKA-03100-JPN-07-0578

PATIENT
  Age: 57 Year
  Sex: Female

DRUGS (8)
  1. MAGNESIUM OXIDE. [Concomitant]
     Active Substance: MAGNESIUM OXIDE
     Route: 048
     Dates: start: 20070223
  2. STOMARCON [Concomitant]
     Active Substance: FAMOTIDINE
     Route: 048
     Dates: start: 20070613
  3. RISPERIDONE. [Concomitant]
     Active Substance: RISPERIDONE
     Indication: SCHIZOPHRENIA
     Dosage: POSTMEDICATION-3MG/DAY;ORAL;(07AUG07-CONTINUING)
     Route: 048
     Dates: start: 20070606, end: 20070711
  4. ARIPIPRAZOLE. [Suspect]
     Active Substance: ARIPIPRAZOLE
     Dosage: 12 MG, QD
     Route: 048
     Dates: start: 20070802, end: 20070806
  5. AKIRIDEN [Concomitant]
     Active Substance: BIPERIDEN
     Route: 048
     Dates: start: 20070606
  6. FAMOTIDINE. [Concomitant]
     Active Substance: FAMOTIDINE
     Dosage: 40 MG, UNK
     Route: 048
     Dates: start: 20070613
  7. ARIPIPRAZOLE. [Suspect]
     Active Substance: ARIPIPRAZOLE
     Dosage: 6 MG, QD
     Route: 048
     Dates: start: 20070712, end: 20070801
  8. SORENTMIN [Concomitant]
     Active Substance: BROTIZOLAM
     Route: 048
     Dates: start: 20070314

REACTIONS (1)
  - Paranoia [Recovering/Resolving]

NARRATIVE: CASE EVENT DATE: 20070801
